FAERS Safety Report 8858237 (Version 1)
Quarter: 2012Q4

REPORT INFORMATION
  Report Type: 
  Country: US (occurrence: US)
  Receive Date: 20121024
  Receipt Date: 20121024
  Transmission Date: 20130627
  Serious: No
  Sender: FDA-Public Use
  Company Number: US-AMGEN-USASP2011068219

PATIENT
  Age: 20 Year
  Sex: Female
  Weight: 58.96 kg

DRUGS (6)
  1. ENBREL [Suspect]
     Indication: JUVENILE ARTHRITIS
     Dosage: 50 mg, qwk
     Route: 058
  2. METHYLIN [Concomitant]
     Dosage: 5 mg, UNK
     Route: 048
  3. MSM [Concomitant]
     Dosage: 500 mg, UNK
     Route: 048
  4. MULTIVITAMIN                       /00097801/ [Concomitant]
     Dosage: UNK
     Route: 048
  5. OMEGA 3                            /01334101/ [Concomitant]
     Dosage: 1000 mg, UNK
     Route: 048
  6. HUMIRA [Concomitant]
     Dosage: UNK

REACTIONS (1)
  - Drug ineffective [Unknown]
